FAERS Safety Report 24040638 (Version 2)
Quarter: 2024Q3

REPORT INFORMATION
  Report Type: Spontaneous
  Country: US (occurrence: US)
  Receive Date: 20240702
  Receipt Date: 20240726
  Transmission Date: 20241016
  Serious: No
  Sender: IPSEN
  Company Number: US-IPSEN Group, Research and Development-2024-12455

PATIENT
  Sex: Male

DRUGS (1)
  1. SOHONOS [Suspect]
     Active Substance: PALOVAROTENE
     Indication: Product used for unknown indication
     Route: 048

REACTIONS (3)
  - Hypertension [Unknown]
  - Headache [Unknown]
  - Skin exfoliation [Unknown]
